FAERS Safety Report 12552949 (Version 1)
Quarter: 2016Q3

REPORT INFORMATION
  Report Type: Spontaneous
  Country: US (occurrence: US)
  Receive Date: 20160713
  Receipt Date: 20160713
  Transmission Date: 20161109
  Serious: Yes (Hospitalization)
  Sender: FDA-Public Use
  Company Number: US-JAZZ-2016-US-012667

PATIENT
  Age: 41 Year
  Sex: Female

DRUGS (1)
  1. XYREM [Suspect]
     Active Substance: SODIUM OXYBATE
     Indication: PRODUCT USED FOR UNKNOWN INDICATION
     Route: 048

REACTIONS (12)
  - Anion gap increased [Recovered/Resolved]
  - Irritability [Recovered/Resolved]
  - Agitation [Recovered/Resolved]
  - Tremor [Recovered/Resolved]
  - Vomiting [Recovered/Resolved]
  - Conduction disorder [Recovered/Resolved]
  - Withdrawal syndrome [Unknown]
  - Nystagmus [Recovered/Resolved]
  - Nausea [Recovered/Resolved]
  - Tachycardia [Recovered/Resolved]
  - Confusional state [Recovered/Resolved]
  - Diarrhoea [Recovered/Resolved]
